FAERS Safety Report 16357304 (Version 2)
Quarter: 2019Q2

REPORT INFORMATION
  Report Type: Report from Study
  Country: US (occurrence: US)
  Receive Date: 20190527
  Receipt Date: 20190530
  Transmission Date: 20190711
  Serious: Yes (Other)
  Sender: FDA-Public Use
  Company Number: US-ROCHE-2322699

PATIENT
  Age: 55 Year
  Sex: Female
  Weight: 82.5 kg

DRUGS (1)
  1. OCREVUS [Suspect]
     Active Substance: OCRELIZUMAB
     Indication: RELAPSING MULTIPLE SCLEROSIS
     Dosage: 300MG ON DAY 0 AND DAY 14, THEN 600MG ONCE IN 6 MONTHS?ON 17/MAY/2019, RECEIVED SECOND HALF
     Route: 065
     Dates: start: 20190516

REACTIONS (3)
  - Throat tightness [Unknown]
  - Rash erythematous [Unknown]
  - Urticaria [Unknown]

NARRATIVE: CASE EVENT DATE: 20190516
